FAERS Safety Report 8378067-8 (Version None)
Quarter: 2012Q2

REPORT INFORMATION
  Report Type: 
  Country: None (occurrence: None)
  Receive Date: 20120522
  Receipt Date: 20120511
  Transmission Date: 20120825
  Serious: Yes (Hospitalization, Other)
  Sender: FDA-Public Use
  Company Number: FR-SP-2012-02326

PATIENT
  Sex: Male

DRUGS (8)
  1. BISOPROLOL FUMARATE [Concomitant]
  2. CRESTOR [Concomitant]
  3. TRANSIPEG [Concomitant]
  4. NEXIUM [Concomitant]
  5. IMMUCYST [Suspect]
     Indication: BLADDER CANCER
     Route: 043
     Dates: start: 20090101, end: 20100401
  6. GAVISCON [Concomitant]
  7. CANDESARTAN CILEXETIL [Concomitant]
  8. ASPIRIN [Concomitant]

REACTIONS (5)
  - INFLAMMATION [None]
  - LEUKOCYTURIA [None]
  - TUBERCULOSIS BLADDER [None]
  - HAEMATURIA [None]
  - CYSTITIS NONINFECTIVE [None]
